FAERS Safety Report 8055229-0 (Version None)
Quarter: 2011Q4

REPORT INFORMATION
  Report Type: 
  Country: None (occurrence: None)
  Receive Date: 20111219
  Receipt Date: 20101118
  Transmission Date: 20120403
  Serious: Yes (Hospitalization)
  Sender: FDA-Public Use
  Company Number: WAES 1011USA02331

PATIENT
  Age: 64 Year
  Sex: Female

DRUGS (3)
  1. JANUVIA [Suspect]
     Indication: PRODUCT USED FOR UNKNOWN INDICATION
     Dosage: 50 MG/DAILY/PO
     Route: 048
     Dates: start: 20101018
  2. PRAVASTATIN SODIUM [Concomitant]
  3. LISINOPRILSODIUM [Concomitant]

REACTIONS (1)
  - PANCREATITIS [None]
